FAERS Safety Report 7770842-3 (Version None)
Quarter: 2011Q3

REPORT INFORMATION
  Report Type: 
  Country: None (occurrence: None)
  Receive Date: 20110922
  Receipt Date: 20101118
  Transmission Date: 20111222
  Serious: No
  Sender: FDA-Public Use
  Company Number: US-ASTRAZENECA-2010SE55144

PATIENT
  Age: 12 Year
  Sex: Male
  Weight: 62.1 kg

DRUGS (4)
  1. SEROQUEL [Suspect]
     Route: 048
     Dates: start: 20100101
  2. SEROQUEL [Suspect]
     Indication: AFFECTIVE DISORDER
     Route: 048
     Dates: start: 20100101
  3. SEROQUEL [Suspect]
     Indication: AGGRESSION
     Route: 048
     Dates: start: 20100101
  4. SEROQUEL [Suspect]
     Route: 048
     Dates: start: 20100101

REACTIONS (3)
  - HYPERHIDROSIS [None]
  - DRUG DOSE OMISSION [None]
  - ANXIETY [None]
